FAERS Safety Report 9912912 (Version 1)
Quarter: 2014Q1

REPORT INFORMATION
  Report Type: Spontaneous
  Country: DE (occurrence: None)
  Receive Date: 20140212
  Receipt Date: 20140212
  Transmission Date: 20141002
  Serious: Yes (Congenital Anomaly, Other)
  Sender: FDA-Public Use
  Company Number: 2169550

PATIENT
  Age: 1 Day
  Sex: 0
  Weight: 1.18 kg

DRUGS (3)
  1. CARBOPLATIN [Suspect]
     Indication: BREAST CANCER
     Dosage: 6 CYCLES, RECIEVED ON 02-SEP, 22-SEP, 13-OCT,03-NOV, AND 15-DEC-2009
     Route: 064
     Dates: start: 20090902, end: 20091215
  2. DOCETAXEL [Suspect]
     Indication: BREAST CANCER
     Dosage: 6 CYCLES, RECEIVED ON 02-SEP, 22-SEP, 13-OCT, 03-NOV, 24-NOV, AND 15-DEC 2009
     Dates: start: 20090902, end: 20091215
  3. TRASTUZUMAB [Suspect]
     Indication: BREAST CANCER
     Dosage: 2 CYCLES, RECIEVED ON 02-SEP, AND
     Dates: start: 20090902, end: 20090922

REACTIONS (8)
  - Oligohydramnios [None]
  - Premature baby [None]
  - Patent ductus arteriosus [None]
  - Atrial septal defect [None]
  - Pulmonary artery stenosis congenital [None]
  - Thrombocytopenia neonatal [None]
  - Foetal growth restriction [None]
  - Maternal drugs affecting foetus [None]
